FAERS Safety Report 4326622-4 (Version None)
Quarter: 2004Q1

REPORT INFORMATION
  Report Type: 
  Country: None (occurrence: None)
  Receive Date: 20040325
  Receipt Date: 20030812
  Transmission Date: 20041129
  Serious: No
  Sender: FDA-Public Use
  Company Number: US044863

PATIENT
  Age: 46 Year
  Sex: Female

DRUGS (6)
  1. NEULASTA [Suspect]
     Indication: CHEMOTHERAPY
     Dosage: 6 MG, EVERY 3 WEEKSEVERY 3, SC
     Route: 058
     Dates: start: 20030731
  2. DOXORUBICIN HYDROCHLORIDE [Concomitant]
  3. CYCLOPHOSPHAMIDE [Concomitant]
  4. DOLASETRON MESYLATE [Concomitant]
  5. DEXAMETHASONE [Concomitant]
  6. THIETHYLPERAZINE MALEATE [Concomitant]

REACTIONS (2)
  - BACK PAIN [None]
  - PAIN [None]
